FAERS Safety Report 10271703 (Version 1)
Quarter: 2014Q3

REPORT INFORMATION
  Report Type: Spontaneous
  Country: US (occurrence: US)
  Receive Date: 20140701
  Receipt Date: 20140701
  Transmission Date: 20150326
  Serious: No
  Sender: FDA-Public Use
  Company Number: US-SA-2014SA016174

PATIENT
  Age: 33 Year
  Sex: Female
  Weight: 100 kg

DRUGS (1)
  1. CEREZYME [Suspect]
     Active Substance: IMIGLUCERASE
     Indication: GAUCHER^S DISEASE
     Dosage: DOSE ; 6000 U DOSE:60 UNIT(S)/KILOGRAM BODYWEIGHT
     Route: 042
     Dates: start: 20130318

REACTIONS (5)
  - Weight increased [Not Recovered/Not Resolved]
  - Sneezing [Not Recovered/Not Resolved]
  - Infusion site rash [Not Recovered/Not Resolved]
  - Abdominal pain [Not Recovered/Not Resolved]
  - Fatigue [Not Recovered/Not Resolved]

NARRATIVE: CASE EVENT DATE: 2013
